FAERS Safety Report 24253141 (Version 1)
Quarter: 2024Q3

REPORT INFORMATION
  Report Type: Report from Study
  Country: US (occurrence: None)
  Receive Date: 20240827
  Receipt Date: 20240827
  Transmission Date: 20241017
  Serious: Yes (Other)
  Sender: ASTRAZENECA
  Company Number: 2024A189856

PATIENT
  Age: 70 Year
  Sex: Female
  Weight: 58.5 kg

DRUGS (1)
  1. TRUQAP [Suspect]
     Active Substance: CAPIVASERTIB
     Route: 048
     Dates: end: 20240819

REACTIONS (1)
  - Disease progression [Unknown]
